FAERS Safety Report 14732794 (Version 2)
Quarter: 2018Q2

REPORT INFORMATION
  Report Type: Spontaneous
  Country: US (occurrence: US)
  Receive Date: 20180409
  Receipt Date: 20180518
  Transmission Date: 20180711
  Serious: No
  Sender: FDA-Public Use
  Company Number: US-PFIZER INC-2018137573

PATIENT
  Age: 12 Year
  Sex: Male

DRUGS (15)
  1. ISOPROPYL ALCOHOL. [Suspect]
     Active Substance: ISOPROPYL ALCOHOL
     Dosage: UNK
  2. POLYMYXIN B SULFATE. [Suspect]
     Active Substance: POLYMYXIN B SULFATE
     Dosage: UNK
  3. SCOPOLAMINE [Suspect]
     Active Substance: SCOPOLAMINE
     Dosage: UNK
  4. GALLAMINE [Suspect]
     Active Substance: GALLAMINE
     Dosage: UNK
  5. RESERPINE. [Suspect]
     Active Substance: RESERPINE
     Dosage: UNK
  6. MORPHINE SULFATE. [Suspect]
     Active Substance: MORPHINE SULFATE
     Dosage: UNK
  7. THIAMINE. [Suspect]
     Active Substance: THIAMINE
     Dosage: UNK
  8. CODEINE [Suspect]
     Active Substance: CODEINE
     Dosage: UNK
  9. DEXAMETHASONE. [Suspect]
     Active Substance: DEXAMETHASONE
     Dosage: UNK
  10. IODINE. [Suspect]
     Active Substance: IODINE
     Dosage: UNK
  11. PROCAINE [Suspect]
     Active Substance: PROCAINE
     Dosage: UNK
  12. QUININE [Suspect]
     Active Substance: QUININE
     Dosage: UNK
  13. ASPIRIN. [Suspect]
     Active Substance: ASPIRIN
     Dosage: UNK
  14. DEXTROAMPHETAMINE. [Suspect]
     Active Substance: DEXTROAMPHETAMINE
     Dosage: UNK
  15. TUBOCURARINE CHLORIDE [Suspect]
     Active Substance: TUBOCURARINE CHLORIDE
     Dosage: UNK

REACTIONS (1)
  - Drug hypersensitivity [Unknown]
